FAERS Safety Report 5338557-9 (Version None)
Quarter: 2007Q2

REPORT INFORMATION
  Report Type: 
  Country: None (occurrence: None)
  Receive Date: 20070530
  Receipt Date: 20070524
  Transmission Date: 20071010
  Serious: Yes (Hospitalization)
  Sender: FDA-Public Use
  Company Number: US-AVENTIS-200713688US

PATIENT
  Sex: Female

DRUGS (2)
  1. LANTUS [Suspect]
     Route: 051
  2. UNKNOWN DRUG [Suspect]

REACTIONS (2)
  - BLOOD GLUCOSE INCREASED [None]
  - GASTROENTERITIS VIRAL [None]
